FAERS Safety Report 7052367-6 (Version None)
Quarter: 2010Q4

REPORT INFORMATION
  Report Type: 
  Country: None (occurrence: None)
  Receive Date: 20101019
  Receipt Date: 20101006
  Transmission Date: 20110411
  Serious: Yes (Hospitalization, Other)
  Sender: FDA-Public Use
  Company Number: US-WATSON-2010-13330

PATIENT
  Sex: Male
  Weight: 88.435 kg

DRUGS (1)
  1. NORCO 10/325 (WATSON LABORATORIES) [Suspect]
     Indication: PAIN
     Dosage: 1 TO 2 TABLETS Q 2 TO 4 HOURS PRN
     Route: 048
     Dates: start: 20041101, end: 20080101

REACTIONS (13)
  - BLOOD CREATININE INCREASED [None]
  - DECREASED APPETITE [None]
  - DEHYDRATION [None]
  - DEPRESSION [None]
  - DIARRHOEA [None]
  - DRUG DEPENDENCE [None]
  - DRUG WITHDRAWAL SYNDROME [None]
  - HOT FLUSH [None]
  - INSOMNIA [None]
  - NAUSEA [None]
  - PAIN [None]
  - RENAL FAILURE [None]
  - SHOULDER OPERATION [None]
